FAERS Safety Report 17032541 (Version 2)
Quarter: 2019Q4

REPORT INFORMATION
  Report Type: Spontaneous
  Country: BR (occurrence: BR)
  Receive Date: 20191114
  Receipt Date: 20191225
  Transmission Date: 20200122
  Serious: Yes (Other)
  Sender: FDA-Public Use
  Company Number: NVSC2019BR034700

PATIENT
  Age: 74 Year
  Sex: Female
  Weight: 79 kg

DRUGS (5)
  1. CATAFLAM [Suspect]
     Active Substance: DICLOFENAC POTASSIUM
     Indication: SPINAL CORD DISORDER
     Route: 065
  2. LOSARTAN. [Concomitant]
     Active Substance: LOSARTAN
     Indication: HYPERTENSION
     Dosage: 1 DF, QD
     Route: 048
  3. CATAFLAM [Suspect]
     Active Substance: DICLOFENAC POTASSIUM
     Indication: PRODUCT USED FOR UNKNOWN INDICATION
     Dosage: UNK
     Route: 065
  4. CATAFLAM [Suspect]
     Active Substance: DICLOFENAC POTASSIUM
     Indication: BACK PAIN
     Dosage: UNK
     Route: 065
  5. CATAFLAM [Suspect]
     Active Substance: DICLOFENAC POTASSIUM
     Indication: MUSCLE STRAIN
     Dosage: 3 DF, EVERY 4 HOURS (SEVERE PAIN), EVERY 8 HOURS (PAIN)
     Route: 065
     Dates: start: 1991

REACTIONS (7)
  - Spinal cord disorder [Not Recovered/Not Resolved]
  - Product dispensing error [Unknown]
  - Product shape issue [Unknown]
  - Product colour issue [Unknown]
  - Drug ineffective [Unknown]
  - Muscle strain [Recovered/Resolved]
  - Back disorder [Recovered/Resolved]

NARRATIVE: CASE EVENT DATE: 2014
